FAERS Safety Report 6830158-6 (Version None)
Quarter: 2010Q3

REPORT INFORMATION
  Report Type: 
  Country: None (occurrence: None)
  Receive Date: 20100711
  Receipt Date: 20100603
  Transmission Date: 20110219
  Serious: No
  Sender: FDA-Public Use
  Company Number: US-ALLERGAN-1007293US

PATIENT
  Sex: Female

DRUGS (2)
  1. LATISSE [Suspect]
     Indication: PRODUCT USED FOR UNKNOWN INDICATION
     Dosage: UNK
  2. CLINIQUE FACIAL PRODUCT WITH SPF [Suspect]

REACTIONS (2)
  - DRUG ADMINISTRATION ERROR [None]
  - SKIN HYPERPIGMENTATION [None]
